FAERS Safety Report 8474747-4 (Version None)
Quarter: 2012Q2

REPORT INFORMATION
  Report Type: 
  Country: None (occurrence: None)
  Receive Date: 20120628
  Receipt Date: 20120618
  Transmission Date: 20120825
  Serious: Yes (Other)
  Sender: FDA-Public Use
  Company Number: US-CELGENEUS-163-21880-10110689

PATIENT
  Sex: Male
  Weight: 81.72 kg

DRUGS (12)
  1. DIAMOX SEQUE [Concomitant]
     Route: 065
  2. VIGAMOX [Concomitant]
     Route: 065
  3. REVLIMID [Suspect]
     Indication: MULTIPLE MYELOMA
     Dosage: 15 MILLIGRAM
     Route: 048
     Dates: start: 20080429
  4. COSOPT [Concomitant]
     Route: 047
  5. TIMOPTIC [Concomitant]
     Route: 047
  6. CEFAZOLIN [Concomitant]
     Route: 065
  7. XALATAN [Concomitant]
     Route: 065
  8. ASPIRIN [Concomitant]
     Dosage: 325 MILLIGRAM
     Route: 048
  9. TOBRAMYCIN [Concomitant]
     Route: 065
  10. MULTI-VITAMINS [Concomitant]
     Route: 048
  11. CIPROFLOXACIN [Concomitant]
     Route: 065
  12. COMBIGAN [Concomitant]
     Route: 065

REACTIONS (2)
  - GLAUCOMA [None]
  - EYE INFECTION [None]
